FAERS Safety Report 5852779-X (Version None)
Quarter: 2008Q3

REPORT INFORMATION
  Report Type: 
  Country: None (occurrence: None)
  Receive Date: 20080819
  Receipt Date: 20080806
  Transmission Date: 20090109
  Serious: Yes (Other)
  Sender: FDA-Public Use
  Company Number: 080807-0000585

PATIENT
  Age: 5 Day
  Sex: Male
  Weight: 0.5 kg

DRUGS (8)
  1. INDOCIN [Suspect]
     Indication: PATENT DUCTUS ARTERIOSUS
     Dosage: 0.1 MG/KG; ;IV, 0.2 MG/KG; ;IV, 0.2 MG/KG; ;IV
     Route: 042
  2. INDOCIN [Suspect]
     Indication: PROPHYLAXIS
     Dosage: 0.1 MG/KG; ;IV, 0.2 MG/KG; ;IV, 0.2 MG/KG; ;IV
     Route: 042
  3. INDOCIN [Suspect]
     Indication: PATENT DUCTUS ARTERIOSUS
     Dosage: 0.1 MG/KG; ;IV, 0.2 MG/KG; ;IV, 0.2 MG/KG; ;IV
     Route: 042
  4. INDOCIN [Suspect]
     Indication: PROPHYLAXIS
     Dosage: 0.1 MG/KG; ;IV, 0.2 MG/KG; ;IV, 0.2 MG/KG; ;IV
     Route: 042
  5. INDOCIN [Suspect]
     Indication: PATENT DUCTUS ARTERIOSUS
     Dosage: 0.1 MG/KG; ;IV, 0.2 MG/KG; ;IV, 0.2 MG/KG; ;IV
     Route: 042
  6. INDOCIN [Suspect]
     Indication: PROPHYLAXIS
     Dosage: 0.1 MG/KG; ;IV, 0.2 MG/KG; ;IV, 0.2 MG/KG; ;IV
     Route: 042
  7. SURFACTEN (NO PREF. NAME) [Suspect]
     Indication: NEONATAL RESPIRATORY DISTRESS SYNDROME
  8. GASTROGRAFIN [Suspect]
     Indication: ABDOMINAL DISTENSION
     Dosage: ; PO, ; PO
     Route: 048

REACTIONS (8)
  - ABDOMINAL ADHESIONS [None]
  - GASTRIC HAEMORRHAGE [None]
  - HAEMATOCHEZIA [None]
  - INTESTINAL ATRESIA [None]
  - NECROTISING COLITIS [None]
  - NEONATAL CHOLESTASIS [None]
  - NEONATAL DISORDER [None]
  - NEONATAL INTESTINAL OBSTRUCTION [None]
